FAERS Safety Report 4707969-6 (Version None)
Quarter: 2005Q3

REPORT INFORMATION
  Report Type: 
  Country: None (occurrence: None)
  Receive Date: 20050707
  Receipt Date: 20050624
  Transmission Date: 20060218
  Serious: Yes (Death, Life-Threatening, Other)
  Sender: FDA-Public Use
  Company Number: GB-JNJFOC-20050302034

PATIENT
  Sex: Female
  Weight: 57 kg

DRUGS (15)
  1. REMICADE [Suspect]
     Indication: RHEUMATOID ARTHRITIS
     Route: 042
  2. ATENOLOL [Concomitant]
  3. GLICLAZIDE [Concomitant]
  4. SIMVASTATIN [Concomitant]
  5. ASPIRIN [Concomitant]
  6. PRAZOSIN [Concomitant]
  7. ETIDRONATE DISODIUM [Concomitant]
  8. CALCICHEW [Concomitant]
  9. AMLODIPINE [Concomitant]
  10. FRUSEMIDE [Concomitant]
  11. PREDNISOLONE [Concomitant]
  12. FERSADAY [Concomitant]
  13. TRAMADOL HCL [Concomitant]
  14. LEFLUNOMIDE [Concomitant]
  15. OMEPRAZOLE [Concomitant]

REACTIONS (2)
  - CEREBROVASCULAR ACCIDENT [None]
  - LEFT VENTRICULAR FAILURE [None]
